FAERS Safety Report 12861371 (Version 1)
Quarter: 2016Q4

REPORT INFORMATION
  Report Type: Spontaneous
  Country: CZ (occurrence: CZ)
  Receive Date: 20161019
  Receipt Date: 20161019
  Transmission Date: 20170207
  Serious: Yes (Life-Threatening, Hospitalization, Other)
  Sender: FDA-Public Use
  Company Number: CZ-TEVA-699962ACC

PATIENT
  Age: 73 Year
  Sex: Male
  Weight: 78 kg

DRUGS (1)
  1. OXALIPLATIN-TEVA 5 MG/ML, CONCENTRATE FOR SOLUTION FOR INFUSION [Suspect]
     Active Substance: OXALIPLATIN
     Indication: RECTAL CANCER
     Dosage: .0714 DOSAGE FORMS DAILY; 7TH CYCLE (2ND AFTER INTERRUPTION)
     Route: 042
     Dates: start: 20160926

REACTIONS (4)
  - Visual impairment [Unknown]
  - Hypersensitivity [Recovered/Resolved]
  - Fall [Unknown]
  - Abdominal discomfort [Unknown]

NARRATIVE: CASE EVENT DATE: 20160926
